FAERS Safety Report 10506537 (Version 2)
Quarter: 2014Q4

REPORT INFORMATION
  Report Type: Spontaneous
  Country: JP (occurrence: JP)
  Receive Date: 20141009
  Receipt Date: 20141009
  Transmission Date: 20150528
  Serious: Yes (Other)
  Sender: FDA-Public Use
  Company Number: JP-BRISTOL-MYERS SQUIBB COMPANY-21430319

PATIENT
  Age: 57 Year
  Sex: Female

DRUGS (4)
  1. JANUVIA [Concomitant]
     Active Substance: SITAGLIPTIN PHOSPHATE
  2. AMARYL [Concomitant]
     Active Substance: GLIMEPIRIDE
  3. REPAGLINIDE. [Suspect]
     Active Substance: REPAGLINIDE
     Route: 048
     Dates: start: 20130811
  4. METGLUCO [Suspect]
     Active Substance: METFORMIN HYDROCHLORIDE
     Indication: DIABETES MELLITUS
     Route: 048

REACTIONS (3)
  - Vomiting [Recovered/Resolved]
  - Nausea [Recovered/Resolved]
  - Bile duct cancer [Unknown]

NARRATIVE: CASE EVENT DATE: 20140912
